FAERS Safety Report 8354428-8 (Version None)
Quarter: 2012Q2

REPORT INFORMATION
  Report Type: 
  Country: None (occurrence: None)
  Receive Date: 20120511
  Receipt Date: 20120427
  Transmission Date: 20120825
  Serious: Yes (Other)
  Sender: FDA-Public Use
  Company Number: ES-WATSON-2012-07695

PATIENT
  Age: 71 Year
  Sex: Male

DRUGS (1)
  1. FLUTAMIDE [Suspect]
     Indication: PROSTATE CANCER
     Dosage: 250 MG, TID
     Route: 048

REACTIONS (3)
  - VITILIGO [None]
  - PHOTOSENSITIVITY REACTION [None]
  - DERMATITIS EXFOLIATIVE [None]
